FAERS Safety Report 17691794 (Version 2)
Quarter: 2020Q2

REPORT INFORMATION
  Report Type: Report from Study
  Country: GT (occurrence: GT)
  Receive Date: 20200422
  Receipt Date: 20200504
  Transmission Date: 20200714
  Serious: Yes (Other)
  Sender: FDA-Public Use
  Company Number: NVSC2020GT107317

PATIENT
  Age: 81 Year
  Sex: Female

DRUGS (1)
  1. EXFORGE HCT [Suspect]
     Active Substance: AMLODIPINE BESYLATE\HYDROCHLOROTHIAZIDE\VALSARTAN
     Indication: PRODUCT USED FOR UNKNOWN INDICATION
     Dosage: UNK, 5/160/12.5MG
     Route: 065

REACTIONS (3)
  - Injury [Unknown]
  - Fear [Unknown]
  - Multiple fractures [Unknown]

NARRATIVE: CASE EVENT DATE: 20200120
